FAERS Safety Report 16298805 (Version 3)
Quarter: 2019Q4

REPORT INFORMATION
  Report Type: Spontaneous
  Country: CA (occurrence: CA)
  Receive Date: 20190510
  Receipt Date: 20191021
  Transmission Date: 20200122
  Serious: Yes (Other)
  Sender: FDA-Public Use
  Company Number: CA-SA-2019SA121113

PATIENT
  Age: 41 Year
  Sex: Female

DRUGS (11)
  1. METHOTREXATE. [Suspect]
     Active Substance: METHOTREXATE
     Indication: RHEUMATOID ARTHRITIS
     Dosage: 20 MG, QW
     Route: 048
  2. KETOPROFEN. [Concomitant]
     Active Substance: KETOPROFEN
     Indication: RHEUMATOID ARTHRITIS
     Dosage: UNK, QD
     Route: 048
  3. XELJANZ [Suspect]
     Active Substance: TOFACITINIB CITRATE
     Indication: RHEUMATOID ARTHRITIS
     Dosage: 5 MG, BID
     Route: 048
     Dates: start: 20180902, end: 2018
  4. ARAVA [Suspect]
     Active Substance: LEFLUNOMIDE
     Indication: PRODUCT USED FOR UNKNOWN INDICATION
     Dosage: 20 MG, QD
     Route: 065
  5. METHOTREXATE. [Suspect]
     Active Substance: METHOTREXATE
     Dosage: 20 MG, QW
     Route: 048
  6. HUMIRA [Suspect]
     Active Substance: ADALIMUMAB
     Dosage: 40 MG, BIW
     Route: 048
  7. METHOTREXATE. [Suspect]
     Active Substance: METHOTREXATE
     Dosage: 25 MG, QW
     Route: 048
  8. ENBREL [Suspect]
     Active Substance: ETANERCEPT
     Indication: RHEUMATOID ARTHRITIS
     Dosage: 50 MG, QW
     Route: 065
     Dates: start: 2018, end: 2018
  9. ENBREL [Suspect]
     Active Substance: ETANERCEPT
     Dosage: UNK UNK, UNK
     Route: 065
  10. HUMIRA [Suspect]
     Active Substance: ADALIMUMAB
     Indication: RHEUMATOID ARTHRITIS
     Dosage: 40 MG, UNK
     Route: 048
  11. XELJANZ [Suspect]
     Active Substance: TOFACITINIB CITRATE
     Dosage: 5 MG, QD
     Route: 048

REACTIONS (8)
  - Eye disorder [Unknown]
  - Rheumatoid arthritis [Unknown]
  - Therapeutic product effect decreased [Unknown]
  - Gastrointestinal disorder [Unknown]
  - Infection [Unknown]
  - Joint stiffness [Unknown]
  - Drug ineffective [Unknown]
  - Skin disorder [Unknown]

NARRATIVE: CASE EVENT DATE: 2018
